FAERS Safety Report 18682635 (Version 4)
Quarter: 2021Q1

REPORT INFORMATION
  Report Type: Report from Study
  Country: None (occurrence: BR)
  Receive Date: 20201229
  Receipt Date: 20210223
  Transmission Date: 20210419
  Serious: Yes (Hospitalization, Disabling, Other)
  Sender: FDA-Public Use
  Company Number: BR-ABBVIE-20K-020-3706482-00

PATIENT
  Age: 43 Year
  Sex: Female
  Weight: 84 kg

DRUGS (3)
  1. HUMIRA [Suspect]
     Active Substance: ADALIMUMAB
     Indication: PRODUCT USED FOR UNKNOWN INDICATION
     Route: 058
  2. TAPAZOL (THIAMAZOLE) [Suspect]
     Active Substance: METHIMAZOLE
     Indication: THYROID DISORDER
     Route: 065
  3. SKYRIZI [Suspect]
     Active Substance: RISANKIZUMAB-RZAA
     Indication: PSORIASIS
     Dosage: LOADING DOSE ? WEEK 00
     Route: 058
     Dates: start: 20201213, end: 20201213

REACTIONS (41)
  - Pain [Recovering/Resolving]
  - Throat tightness [Unknown]
  - Swelling [Recovering/Resolving]
  - Bacterial infection [Unknown]
  - Cough [Recovering/Resolving]
  - Headache [Not Recovered/Not Resolved]
  - Urinary tract disorder [Unknown]
  - Hypoaesthesia [Unknown]
  - Drug hypersensitivity [Unknown]
  - Blood pressure abnormal [Not Recovered/Not Resolved]
  - Bacteraemia [Recovered/Resolved]
  - Respiration abnormal [Recovering/Resolving]
  - Weight increased [Unknown]
  - Injection site discolouration [Unknown]
  - Heart rate increased [Unknown]
  - Nervousness [Unknown]
  - Hypersensitivity [Unknown]
  - Gait inability [Unknown]
  - Neck pain [Unknown]
  - Hypertension [Unknown]
  - Blood glucose abnormal [Recovered/Resolved]
  - Urinary tract infection [Recovered/Resolved]
  - Chest pain [Recovering/Resolving]
  - Urticaria [Unknown]
  - Suspected COVID-19 [Recovering/Resolving]
  - Weight decreased [Recovered/Resolved]
  - Skin irritation [Unknown]
  - Bone pain [Recovering/Resolving]
  - Skin plaque [Unknown]
  - Anxiety [Unknown]
  - Pruritus [Unknown]
  - Anosmia [Recovering/Resolving]
  - Ageusia [Recovering/Resolving]
  - Asthenia [Recovering/Resolving]
  - General physical condition abnormal [Unknown]
  - Palpitations [Unknown]
  - Blood cholesterol abnormal [Recovered/Resolved]
  - Tremor [Unknown]
  - Hepatic steatosis [Unknown]
  - Chromaturia [Unknown]
  - Urine output decreased [Unknown]

NARRATIVE: CASE EVENT DATE: 202012
